FAERS Safety Report 7493476-7 (Version None)
Quarter: 2011Q2

REPORT INFORMATION
  Report Type: 
  Country: None (occurrence: None)
  Receive Date: 20110520
  Receipt Date: 20101231
  Transmission Date: 20111010
  Serious: Yes (Hospitalization, Other)
  Sender: FDA-Public Use
  Company Number: US-BAYER-201029035NA

PATIENT
  Age: 32 Year
  Sex: Female
  Weight: 63 kg

DRUGS (15)
  1. AMBIEN [Concomitant]
     Indication: INSOMNIA
     Dosage: UNK
  2. VALTREX [Concomitant]
     Indication: ORAL HERPES
     Dosage: UNK
     Dates: start: 20070101
  3. ESTRACE [Concomitant]
  4. YAZ [Suspect]
     Indication: MENSTRUATION IRREGULAR
  5. YAZ [Suspect]
     Indication: PREMENSTRUAL SYNDROME
     Route: 048
     Dates: start: 20060101, end: 20090615
  6. IBUPROFEN [Concomitant]
     Indication: PAIN
     Dosage: UNK
     Dates: start: 20000101
  7. YAZ [Suspect]
  8. YASMIN [Suspect]
     Indication: PRODUCT USED FOR UNKNOWN INDICATION
     Route: 048
     Dates: start: 20060101, end: 20090101
  9. REMICADE [Concomitant]
     Indication: ANKYLOSING SPONDYLITIS
     Dosage: UNK
     Dates: start: 20050101, end: 20091001
  10. YAZ [Suspect]
     Indication: POLYCYSTIC OVARIES
  11. PROAIR HFA [Concomitant]
     Indication: PRODUCT USED FOR UNKNOWN INDICATION
     Dosage: UNK
     Dates: start: 20090601, end: 20100501
  12. FLEXERIL [Concomitant]
     Indication: ANKYLOSING SPONDYLITIS
     Dosage: UNK
     Dates: start: 20080101
  13. PERCOCET [Concomitant]
     Indication: ORAL HERPES
     Dosage: UNK
     Dates: start: 20070101
  14. PHENERGAN HCL [Concomitant]
     Indication: NAUSEA
  15. YAZ [Suspect]
     Indication: DYSMENORRHOEA

REACTIONS (4)
  - PULMONARY EMBOLISM [None]
  - PULMONARY THROMBOSIS [None]
  - DEEP VEIN THROMBOSIS [None]
  - PULMONARY INFARCTION [None]
